FAERS Safety Report 16246837 (Version 1)
Quarter: 2019Q2

REPORT INFORMATION
  Report Type: Spontaneous
  Country: ES (occurrence: ES)
  Receive Date: 20190427
  Receipt Date: 20190427
  Transmission Date: 20190711
  Serious: Yes (Life-Threatening, Hospitalization, Other)
  Sender: FDA-Public Use
  Company Number: ES-ACCORD-124164

PATIENT
  Age: 59 Year
  Sex: Male
  Weight: 53 kg

DRUGS (4)
  1. ERBITUX [Interacting]
     Active Substance: CETUXIMAB
     Indication: MALIGNANT PALATE NEOPLASM
     Route: 042
     Dates: start: 20180914, end: 20180914
  2. FLUOROURACIL ACCORD [Interacting]
     Active Substance: FLUOROURACIL
     Indication: MALIGNANT PALATE NEOPLASM
     Route: 042
     Dates: start: 20180914, end: 20180914
  3. FORTECORTIN [Concomitant]
     Active Substance: DEXAMETHASONE
     Indication: INFLAMMATION
     Route: 048
     Dates: start: 20180913, end: 20180915
  4. CISPLATIN. [Suspect]
     Active Substance: CISPLATIN
     Indication: METASTASES TO LUNG
     Route: 042
     Dates: start: 20180914, end: 20180914

REACTIONS (2)
  - Acute myocardial infarction [Recovered/Resolved with Sequelae]
  - Drug interaction [Unknown]

NARRATIVE: CASE EVENT DATE: 20180918
